FAERS Safety Report 19731405 (Version 1)
Quarter: 2021Q3

REPORT INFORMATION
  Report Type: Spontaneous
  Country: US (occurrence: US)
  Receive Date: 20210820
  Receipt Date: 20210820
  Transmission Date: 20211014
  Serious: No
  Sender: FDA-Public Use
  Company Number: None

PATIENT
  Age: 67 Year
  Sex: Female

DRUGS (1)
  1. VERZENIO [Suspect]
     Active Substance: ABEMACICLIB
     Indication: BREAST CANCER
     Route: 048
     Dates: start: 20210415

REACTIONS (5)
  - Therapy interrupted [None]
  - Impaired healing [None]
  - Dental caries [None]
  - Infection [None]
  - White blood cell count decreased [None]

NARRATIVE: CASE EVENT DATE: 20210615
